FAERS Safety Report 7914578-4 (Version None)
Quarter: 2011Q4

REPORT INFORMATION
  Report Type: 
  Country: None (occurrence: None)
  Receive Date: 20111115
  Receipt Date: 20111104
  Transmission Date: 20120403
  Serious: Yes (Other)
  Sender: FDA-Public Use
  Company Number: PHHY2011MX097951

PATIENT
  Sex: Female

DRUGS (1)
  1. EXFORGE [Suspect]
     Indication: HYPERTENSION
     Dosage: 1 DF, (160/5 MG ONA TABLET DAILY)
     Dates: start: 20110501

REACTIONS (4)
  - MALAISE [None]
  - OEDEMA PERIPHERAL [None]
  - RENAL DISORDER [None]
  - EYE SWELLING [None]
